FAERS Safety Report 7366443-1 (Version None)
Quarter: 2011Q1

REPORT INFORMATION
  Report Type: 
  Country: None (occurrence: None)
  Receive Date: 20110322
  Receipt Date: 20110310
  Transmission Date: 20110831
  Serious: Yes (Death, Hospitalization)
  Sender: FDA-Public Use
  Company Number: JP-PAR PHARMACEUTICAL, INC-2011SCPR002737

PATIENT
  Age: 60 Year
  Sex: Male

DRUGS (1)
  1. DEXAMETHASONE [Suspect]
     Indication: MULTIPLE MYELOMA
     Dosage: 40 MG/DAY ON DAYS 1-4, 9-12 AND 17-20
     Route: 065

REACTIONS (4)
  - DEATH [None]
  - AMOEBIC COLITIS [None]
  - CYTOMEGALOVIRUS COLITIS [None]
  - GASTROINTESTINAL HAEMORRHAGE [None]
